FAERS Safety Report 23926587 (Version 6)
Quarter: 2024Q3

REPORT INFORMATION
  Report Type: Spontaneous
  Country: US (occurrence: US)
  Receive Date: 20240531
  Receipt Date: 20240924
  Transmission Date: 20241017
  Serious: No
  Sender: PFIZER
  Company Number: US-PFIZER INC-202400178625

PATIENT
  Age: 26 Year
  Sex: Female
  Weight: 63.5 kg

DRUGS (1)
  1. DEPO-PROVERA [Suspect]
     Active Substance: MEDROXYPROGESTERONE ACETATE
     Indication: Contraception
     Dosage: 104 MG, EVERY 3 MONTHS
     Dates: start: 202301

REACTIONS (3)
  - Product administration error [Unknown]
  - Device occlusion [Unknown]
  - Needle issue [Unknown]

NARRATIVE: CASE EVENT DATE: 20240501
